FAERS Safety Report 12396551 (Version 1)
Quarter: 2016Q2

REPORT INFORMATION
  Report Type: Spontaneous
  Country: US (occurrence: None)
  Receive Date: 20160523
  Receipt Date: 20160523
  Transmission Date: 20160815
  Serious: Yes (Disabling, Other)
  Sender: FDA-Public Use
  Company Number: None

PATIENT
  Age: 49 Year
  Sex: Female
  Weight: 58.06 kg

DRUGS (5)
  1. CENTRUM FOR WOMEN [Concomitant]
     Active Substance: VITAMINS
  2. LEVAQUIN [Suspect]
     Active Substance: LEVOFLOXACIN
     Indication: SINUSITIS
     Route: 048
     Dates: start: 20151229, end: 20151231
  3. ESTRODOL [Concomitant]
  4. PREMARIN [Concomitant]
     Active Substance: ESTROGENS, CONJUGATED
  5. PROBIOTICS [Concomitant]
     Active Substance: PROBIOTICS NOS

REACTIONS (8)
  - Feeling abnormal [None]
  - Asthenia [None]
  - Impaired work ability [None]
  - Depression [None]
  - Insomnia [None]
  - Activities of daily living impaired [None]
  - Tendon rupture [None]
  - Tendonitis [None]

NARRATIVE: CASE EVENT DATE: 20160109
